FAERS Safety Report 4631130-7 (Version None)
Quarter: 2005Q2

REPORT INFORMATION
  Report Type: 
  Country: None (occurrence: None)
  Receive Date: 20050407
  Receipt Date: 20050407
  Transmission Date: 20051028
  Serious: Yes (Hospitalization)
  Sender: FDA-Public Use
  Company Number: None

PATIENT
  Sex: Female
  Weight: 58.9676 kg

DRUGS (1)
  1. SUDAFED     STANDARD RED TABLET   MERCK [Suspect]
     Dosage: 1 DAY ORAL
     Route: 048
     Dates: start: 20050321, end: 20050322

REACTIONS (2)
  - DIZZINESS [None]
  - HEART RATE INCREASED [None]
